FAERS Safety Report 12484082 (Version 2)
Quarter: 2016Q3

REPORT INFORMATION
  Report Type: Spontaneous
  Country: GB (occurrence: GB)
  Receive Date: 20160621
  Receipt Date: 20160727
  Transmission Date: 20161109
  Serious: Yes (Life-Threatening)
  Sender: FDA-Public Use
  Company Number: GB-WATSON-2016-12715

PATIENT
  Age: 34 Year
  Sex: Male

DRUGS (2)
  1. MIRTAZAPINE (UNKNOWN) [Suspect]
     Active Substance: MIRTAZAPINE
     Dosage: 15 MG, UNK, 15 THEN 30
     Route: 048
     Dates: start: 20160501
  2. MIRTAZAPINE (UNKNOWN) [Suspect]
     Active Substance: MIRTAZAPINE
     Indication: DEPRESSION
     Dosage: 30 MG, UNK, 15 THEN 30
     Route: 048
     Dates: end: 20160520

REACTIONS (2)
  - Agitation [Recovered/Resolved]
  - Suicidal behaviour [Recovered/Resolved]

NARRATIVE: CASE EVENT DATE: 20160510
